FAERS Safety Report 6269823-0 (Version None)
Quarter: 2009Q3

REPORT INFORMATION
  Report Type: 
  Country: None (occurrence: None)
  Receive Date: 20090716
  Receipt Date: 20090615
  Transmission Date: 20100115
  Serious: No
  Sender: FDA-Public Use
  Company Number: US-BAYER-200917807NA

PATIENT
  Age: 81 Year
  Sex: Male

DRUGS (1)
  1. CIPRO [Suspect]
     Indication: LIVER ABSCESS
     Dosage: TOTAL DAILY DOSE: 1000 MG  UNIT DOSE: 500 MG
     Dates: start: 20090323

REACTIONS (1)
  - FAECES DISCOLOURED [None]
